FAERS Safety Report 8203406-8 (Version None)
Quarter: 2012Q1

REPORT INFORMATION
  Report Type: 
  Country: None (occurrence: None)
  Receive Date: 20120312
  Receipt Date: 20120302
  Transmission Date: 20120608
  Serious: Yes (Other)
  Sender: FDA-Public Use
  Company Number: US-ASTRAZENECA-2011SE54474

PATIENT
  Age: 57 Year
  Sex: Female

DRUGS (2)
  1. PRILOSEC [Suspect]
     Route: 048
  2. NEXIUM [Suspect]
     Route: 048

REACTIONS (9)
  - IMPAIRED GASTRIC EMPTYING [None]
  - DYSPHAGIA [None]
  - MALAISE [None]
  - THROAT TIGHTNESS [None]
  - DRUG DOSE OMISSION [None]
  - PORTAL HYPERTENSIVE GASTROPATHY [None]
  - VOMITING [None]
  - MALABSORPTION [None]
  - DRUG INEFFECTIVE [None]
